FAERS Safety Report 9602576 (Version 1)
Quarter: 2013Q4

REPORT INFORMATION
  Report Type: Spontaneous
  Country: US (occurrence: US)
  Receive Date: 20131007
  Receipt Date: 20131007
  Transmission Date: 20140711
  Serious: No
  Sender: FDA-Public Use
  Company Number: US-PFIZER INC-2013282995

PATIENT
  Age: 53 Year
  Sex: Female

DRUGS (8)
  1. IBUPROFEN [Suspect]
     Dosage: UNK
  2. METOPROLOL TARTRATE [Concomitant]
     Indication: MITRAL VALVE PROLAPSE
     Dosage: 50 MG, TWO TIMES A DAY
  3. ALBUTEROL [Concomitant]
     Indication: ASTHMA
     Dosage: UNK, AS NEEDED
  4. LANTUS [Concomitant]
     Indication: DIABETES MELLITUS
     Dosage: 30 IU, TWO TIMES A DAY
  5. METFORMIN [Concomitant]
     Indication: DIABETES MELLITUS
     Dosage: 500 MG, TWO TIMES A DAY
  6. TRAMADOL [Concomitant]
     Dosage: 50 MG, TWO TIMES A DAY
  7. MELOXICAM [Concomitant]
     Indication: INFLAMMATION
     Dosage: 15 MG, DAILY
  8. MELOXICAM [Concomitant]
     Indication: FIBROMYALGIA

REACTIONS (2)
  - Drug hypersensitivity [Unknown]
  - Heart rate increased [Unknown]
